FAERS Safety Report 8877362 (Version 1)
Quarter: 2012Q4

REPORT INFORMATION
  Report Type: Spontaneous
  Country: US (occurrence: None)
  Receive Date: 20121026
  Receipt Date: 20121026
  Transmission Date: 20130627
  Serious: Yes (Hospitalization)
  Sender: FDA-Public Use
  Company Number: 2012SUN00170

PATIENT
  Age: 47 Year
  Sex: Male

DRUGS (1)
  1. TRAMADOL [Suspect]
     Indication: DRUG USE FOR UNKNOWN INDICATION
     Route: 048

REACTIONS (5)
  - Intentional overdose [None]
  - Electrocardiogram abnormal [None]
  - Unresponsive to stimuli [None]
  - Mental status changes [None]
  - Hypoventilation [None]
